FAERS Safety Report 15859354 (Version 1)
Quarter: 2019Q1

REPORT INFORMATION
  Report Type: Spontaneous
  Country: US (occurrence: US)
  Receive Date: 20190123
  Receipt Date: 20190123
  Transmission Date: 20190417
  Serious: Yes (Other)
  Sender: FDA-Public Use
  Company Number: None

PATIENT
  Age: 87 Year
  Sex: Female
  Weight: 55.35 kg

DRUGS (16)
  1. ASPIRIN 81MG [Concomitant]
     Active Substance: ASPIRIN
  2. LUTEIN [Concomitant]
     Active Substance: LUTEIN
  3. NINLARO [Suspect]
     Active Substance: IXAZOMIB CITRATE
     Indication: PLASMA CELL MYELOMA
     Dosage: ?          OTHER FREQUENCY:DAY 1,8,15;?
     Route: 048
     Dates: start: 20180809, end: 20180930
  4. VITAMIN E [Concomitant]
     Active Substance: .ALPHA.-TOCOPHEROL
  5. CALCIUM + D [Concomitant]
     Active Substance: CALCIUM\VITAMIN D
  6. MAGNESIUM [Concomitant]
     Active Substance: MAGNESIUM
  7. HYDRALAZINE [Concomitant]
     Active Substance: HYDRALAZINE HYDROCHLORIDE
  8. WOMEN DAILY FORMULA [Concomitant]
  9. ZINC. [Concomitant]
     Active Substance: ZINC
  10. ELIQUIS [Concomitant]
     Active Substance: APIXABAN
  11. METOPROLOL TARTRATE. [Concomitant]
     Active Substance: METOPROLOL TARTRATE
  12. FUROSEMIDE. [Concomitant]
     Active Substance: FUROSEMIDE
  13. METAMUCIL [Concomitant]
     Active Substance: PLANTAGO SEED
  14. NAPROXEN. [Concomitant]
     Active Substance: NAPROXEN
  15. SELENIUM [Concomitant]
     Active Substance: SELENIUM
  16. ZOMETA [Concomitant]
     Active Substance: ZOLEDRONIC ACID

REACTIONS (2)
  - Neuropathy peripheral [None]
  - Depression [None]
